FAERS Safety Report 11139142 (Version 1)
Quarter: 2015Q2

REPORT INFORMATION
  Report Type: Spontaneous
  Country: US (occurrence: US)
  Receive Date: 20150527
  Receipt Date: 20150527
  Transmission Date: 20150821
  Serious: Yes (Hospitalization)
  Sender: FDA-Public Use
  Company Number: US-MALLINCKRODT-T201404252

PATIENT
  Sex: Male

DRUGS (1)
  1. H.P. ACTHAR [Suspect]
     Active Substance: CORTICOTROPIN
     Indication: PROTEINURIA
     Dosage: 40 U/ML, TWICE A WEEK
     Route: 058
     Dates: start: 20141009

REACTIONS (3)
  - Fall [Recovered/Resolved]
  - Joint swelling [Recovered/Resolved]
  - Blood glucose increased [Recovered/Resolved]
